FAERS Safety Report 10155774 (Version 1)
Quarter: 2014Q2

REPORT INFORMATION
  Report Type: Spontaneous
  Country: US (occurrence: US)
  Receive Date: 20140506
  Receipt Date: 20140506
  Transmission Date: 20141212
  Serious: Yes (Hospitalization)
  Sender: FDA-Public Use
  Company Number: US-ABBVIE-14P-163-1230466-00

PATIENT
  Sex: Female
  Weight: 78.09 kg

DRUGS (13)
  1. HUMIRA [Suspect]
     Indication: CROHN^S DISEASE
     Dates: start: 2010, end: 2010
  2. HUMIRA [Suspect]
     Dates: start: 2010, end: 2010
  3. HUMIRA [Suspect]
     Dates: start: 2010, end: 2012
  4. HUMIRA [Suspect]
     Indication: CROHN^S DISEASE
     Dates: start: 20140424, end: 20140424
  5. HUMIRA [Suspect]
  6. HYDROCODONE [Suspect]
     Indication: ABDOMINAL PAIN
  7. PREDNISONE [Suspect]
     Indication: DIARRHOEA HAEMORRHAGIC
     Route: 048
  8. UNKNOWN STEROID [Suspect]
     Indication: DIARRHOEA HAEMORRHAGIC
     Route: 042
  9. LOVASTATIN [Concomitant]
     Indication: BLOOD CHOLESTEROL INCREASED
  10. ATENOLOL [Concomitant]
     Indication: HYPERTENSION
  11. VITAMIN C [Concomitant]
     Indication: VITAMIN SUPPLEMENTATION
  12. VITAMIN D [Concomitant]
     Indication: VITAMIN SUPPLEMENTATION
  13. CALCIUM [Concomitant]
     Indication: MINERAL SUPPLEMENTATION

REACTIONS (5)
  - Gastrointestinal inflammation [Not Recovered/Not Resolved]
  - Diarrhoea haemorrhagic [Not Recovered/Not Resolved]
  - Withdrawal syndrome [Not Recovered/Not Resolved]
  - Malaise [Unknown]
  - Abdominal pain [Not Recovered/Not Resolved]
